FAERS Safety Report 19241075 (Version 2)
Quarter: 2021Q3

REPORT INFORMATION
  Report Type: Spontaneous
  Country: US (occurrence: US)
  Receive Date: 20210511
  Receipt Date: 20210818
  Transmission Date: 20211014
  Serious: No
  Sender: FDA-Public Use
  Company Number: US-BAYER-2021-138994

PATIENT
  Age: 30 Year
  Sex: Female

DRUGS (1)
  1. MIRENA [Suspect]
     Active Substance: LEVONORGESTREL
     Indication: CONTRACEPTION
     Dosage: 20 ?G PER DAY CONTINUOUSLY
     Route: 015
     Dates: start: 20210507, end: 202105

REACTIONS (6)
  - Vulvovaginal discomfort [None]
  - Complication of device insertion [None]
  - Device expulsion [Recovered/Resolved]
  - Procedural pain [None]
  - Intentional medical device removal by patient [None]
  - Vaginal discharge [None]

NARRATIVE: CASE EVENT DATE: 202105
